FAERS Safety Report 8270674-6 (Version None)
Quarter: 2012Q2

REPORT INFORMATION
  Report Type: 
  Country: None (occurrence: None)
  Receive Date: 20120410
  Receipt Date: 20120405
  Transmission Date: 20120825
  Serious: Yes (Hospitalization, Other)
  Sender: FDA-Public Use
  Company Number: US-INCYTE CORPORATION-2012IN000335

PATIENT
  Sex: Male
  Weight: 75.283 kg

DRUGS (3)
  1. ANAGRELIDE HCL [Concomitant]
     Dosage: UNK
  2. ASPIRIN [Concomitant]
     Dosage: UNK
  3. JAKAFI [Suspect]
     Indication: MYELOFIBROSIS
     Dosage: 20 MG, ON DAYS OF DIALYSIS ONLY, TAKE ONE 20 MG TABLET ONCE DAILY
     Route: 048
     Dates: start: 20120301, end: 20120301

REACTIONS (1)
  - GASTROINTESTINAL HAEMORRHAGE [None]
